FAERS Safety Report 24377436 (Version 3)
Quarter: 2024Q4

REPORT INFORMATION
  Report Type: Spontaneous
  Country: US (occurrence: US)
  Receive Date: 20240930
  Receipt Date: 20241209
  Transmission Date: 20250115
  Serious: No
  Sender: BRISTOL-MYERS SQUIBB COMPANY
  Company Number: US-BRISTOL-MYERS SQUIBB COMPANY-2024-153137

PATIENT
  Age: 68 Year
  Sex: Male

DRUGS (5)
  1. ELIQUIS [Interacting]
     Active Substance: APIXABAN
     Indication: Product used for unknown indication
  2. HYDROCODONE [Interacting]
     Active Substance: HYDROCODONE
     Indication: Product used for unknown indication
  3. TUKYSA [Interacting]
     Active Substance: TUCATINIB
     Indication: Product used for unknown indication
  4. CAPECITABINE [Concomitant]
     Active Substance: CAPECITABINE
     Indication: Product used for unknown indication
  5. HERCEPTIN [Concomitant]
     Active Substance: TRASTUZUMAB
     Indication: Product used for unknown indication

REACTIONS (1)
  - Drug interaction [Unknown]
